FAERS Safety Report 16760502 (Version 1)
Quarter: 2019Q3

REPORT INFORMATION
  Report Type: Spontaneous
  Country: JP (occurrence: JP)
  Receive Date: 20190830
  Receipt Date: 20190830
  Transmission Date: 20191005
  Serious: Yes (Death, Other)
  Sender: FDA-Public Use
  Company Number: JP-SA-2019SA239212

PATIENT
  Age: 71 Year
  Sex: Female

DRUGS (6)
  1. LEVOFOLINATE CALCIUM [Concomitant]
     Active Substance: LEVOLEUCOVORIN CALCIUM
     Dosage: UNK UNK, UNK
  2. ELPLAT [Suspect]
     Active Substance: OXALIPLATIN
     Indication: COLON CANCER
     Dosage: UNK UNK, UNK
     Route: 041
  3. PANITUMUMAB RECOMBINANT [Concomitant]
     Active Substance: PANITUMUMAB
     Dosage: UNK UNK, UNK
  4. CAMPTO [Suspect]
     Active Substance: IRINOTECAN
     Indication: COLON CANCER
     Dosage: UNK UNK, UNK
  5. FLUOROURACIL. [Concomitant]
     Active Substance: FLUOROURACIL
     Dosage: UNK UNK, UNK
  6. AVASTIN [Concomitant]
     Active Substance: BEVACIZUMAB
     Dosage: UNK UNK, UNK

REACTIONS (5)
  - Enteropathy-associated T-cell lymphoma [Fatal]
  - Sepsis [Fatal]
  - Intestinal perforation [Unknown]
  - Postoperative abscess [Unknown]
  - Haemorrhage [Unknown]
